FAERS Safety Report 6817735-3 (Version None)
Quarter: 2010Q3

REPORT INFORMATION
  Report Type: 
  Country: None (occurrence: None)
  Receive Date: 20100706
  Receipt Date: 20100629
  Transmission Date: 20110219
  Serious: Yes (Death)
  Sender: FDA-Public Use
  Company Number: JP-BRACCO-003617

PATIENT
  Sex: Male

DRUGS (3)
  1. IOPAMIDOL [Suspect]
     Indication: ACUTE MYOCARDIAL INFARCTION
     Route: 013
     Dates: start: 20100609, end: 20100609
  2. IOPAMIDOL [Suspect]
     Indication: PERCUTANEOUS CORONARY INTERVENTION
     Route: 013
     Dates: start: 20100609, end: 20100609
  3. IOPAMIDOL [Suspect]
     Indication: ANGIOGRAM
     Route: 013
     Dates: start: 20100609, end: 20100609

REACTIONS (4)
  - ANAPHYLACTIC REACTION [None]
  - ANAPHYLACTIC SHOCK [None]
  - CONTRAST MEDIA ALLERGY [None]
  - RESPIRATORY FAILURE [None]
